FAERS Safety Report 18762795 (Version 1)
Quarter: 2021Q1

REPORT INFORMATION
  Report Type: Report from Study
  Country: DE (occurrence: DE)
  Receive Date: 20210120
  Receipt Date: 20210120
  Transmission Date: 20210419
  Serious: Yes (Hospitalization, Other)
  Sender: FDA-Public Use
  Company Number: DE-TAKEDA-DE201402882

PATIENT

DRUGS (11)
  1. LEVETIRACETAM. [Concomitant]
     Active Substance: LEVETIRACETAM
     Indication: EPILEPSY
  2. BUTYLSCOPOLAMINE BROMIDE [Concomitant]
     Active Substance: BUTYLSCOPOLAMINE BROMIDE
     Indication: GASTROINTESTINAL DISORDER
  3. MOVICOL [Concomitant]
     Active Substance: POLYETHYLENE GLYCOL 3350\POTASSIUM CHLORIDE\SODIUM BICARBONATE\SODIUM CHLORIDE
     Indication: GASTROINTESTINAL DISORDER
  4. PANTOPRAZOLE [Concomitant]
     Active Substance: PANTOPRAZOLE
     Indication: GASTROINTESTINAL DISORDER PROPHYLAXIS
  5. IDURSULFASE [Suspect]
     Active Substance: IDURSULFASE
     Dosage: 0.55 MG/KG, 1X/WEEK
     Route: 041
     Dates: start: 20070817
  6. VALPROIC ACID. [Concomitant]
     Active Substance: VALPROIC ACID
     Indication: NERVOUS SYSTEM DISORDER
  7. NACL [Concomitant]
     Active Substance: SODIUM CHLORIDE
     Indication: RESPIRATORY DISORDER
  8. CEFUROXIME. [Concomitant]
     Active Substance: CEFUROXIME
     Indication: INFECTION
  9. IDURSULFASE [Suspect]
     Active Substance: IDURSULFASE
     Indication: MUCOPOLYSACCHARIDOSIS II
     Dosage: 0.53 MG/KG, 1X/WEEK
     Route: 041
     Dates: start: 20080821
  10. IDURSULFASE [Suspect]
     Active Substance: IDURSULFASE
     Dosage: UNK, UNKNOWN
     Route: 041
     Dates: start: 20070221
  11. SALBUTAMOL [Concomitant]
     Active Substance: ALBUTEROL
     Indication: RESPIRATORY DISORDER

REACTIONS (3)
  - Fatigue [Recovered/Resolved]
  - Body temperature increased [Recovered/Resolved]
  - Tracheomalacia [Recovered/Resolved with Sequelae]

NARRATIVE: CASE EVENT DATE: 20090210
